FAERS Safety Report 18845546 (Version 1)
Quarter: 2021Q1

REPORT INFORMATION
  Report Type: Report from Study
  Country: CA (occurrence: CA)
  Receive Date: 20210203
  Receipt Date: 20210203
  Transmission Date: 20210419
  Serious: No
  Sender: FDA-Public Use
  Company Number: CA-EXELIXIS-CABO-20028472

PATIENT
  Sex: Male

DRUGS (5)
  1. LIPITOR [Concomitant]
     Active Substance: ATORVASTATIN CALCIUM
     Dosage: UNK
  2. CABOMETYX [Suspect]
     Active Substance: CABOZANTINIB S-MALATE
     Indication: RENAL CELL CARCINOMA
     Dosage: 60 MG, QD
     Route: 048
     Dates: start: 20200212
  3. METFORMIN [Concomitant]
     Active Substance: METFORMIN HYDROCHLORIDE
     Dosage: UNK
  4. CABOMETYX [Suspect]
     Active Substance: CABOZANTINIB S-MALATE
     Dosage: 40 MG, QD FOR 14 DAYS THEN STOP FOR 5 DAYS THEN REPEAT
     Route: 048
     Dates: end: 20201111
  5. CABOMETYX [Suspect]
     Active Substance: CABOZANTINIB S-MALATE
     Dosage: 40 MG, QD
     Route: 048

REACTIONS (14)
  - Sinusitis [Unknown]
  - Pharyngitis [Unknown]
  - Diarrhoea [Recovering/Resolving]
  - Rhinorrhoea [Recovered/Resolved]
  - Stomatitis [Unknown]
  - Decreased appetite [Recovered/Resolved]
  - Abdominal discomfort [Unknown]
  - Oral pain [Recovered/Resolved]
  - Weight decreased [Unknown]
  - Haemorrhoids [Recovered/Resolved]
  - Thyroid disorder [Recovered/Resolved]
  - Feeding disorder [Unknown]
  - Asthenia [Recovered/Resolved]
  - Inappropriate schedule of product administration [Unknown]
